FAERS Safety Report 10970199 (Version 1)
Quarter: 2015Q1

REPORT INFORMATION
  Report Type: Spontaneous
  Country: US (occurrence: US)
  Receive Date: 20150331
  Receipt Date: 20150331
  Transmission Date: 20150721
  Serious: No
  Sender: FDA-Public Use
  Company Number: US-SHIRE-US201502642

PATIENT
  Sex: Male
  Weight: 32.65 kg

DRUGS (4)
  1. OTHER ANTIALLERGICS [Concomitant]
     Indication: ALLERGY TO ANIMAL
     Dosage: UNK, 1X/DAY:QD
     Route: 065
  2. OTHER ANTIALLERGICS [Concomitant]
     Dosage: UNK, AS REQ^D
     Route: 065
  3. ADDERALL XR [Suspect]
     Active Substance: AMPHETAMINE ASPARTATE\AMPHETAMINE SULFATE\DEXTROAMPHETAMINE SACCHARATE\DEXTROAMPHETAMINE SULFATE
     Indication: ATTENTION DEFICIT/HYPERACTIVITY DISORDER
     Dosage: 1 DF, 1X/DAY:QD
     Route: 048
  4. ADDERALL XR [Suspect]
     Active Substance: AMPHETAMINE ASPARTATE\AMPHETAMINE SULFATE\DEXTROAMPHETAMINE SACCHARATE\DEXTROAMPHETAMINE SULFATE
     Dosage: 1 DF (INCREASED), 1X/DAY:QD
     Route: 048

REACTIONS (2)
  - Insomnia [Unknown]
  - Drug ineffective [Recovered/Resolved]
